FAERS Safety Report 7380841-1 (Version None)
Quarter: 2011Q1

REPORT INFORMATION
  Report Type: 
  Country: None (occurrence: None)
  Receive Date: 20110329
  Receipt Date: 20110321
  Transmission Date: 20110831
  Serious: Yes (Hospitalization)
  Sender: FDA-Public Use
  Company Number: B0707020A

PATIENT
  Sex: Female

DRUGS (6)
  1. DEROXAT [Suspect]
     Dosage: 20MG PER DAY
     Route: 048
     Dates: end: 20101105
  2. TRIMEPRAZINE TARTRATE [Concomitant]
     Route: 048
  3. DEPAKOTE [Suspect]
     Dosage: 500MG TWICE PER DAY
     Route: 048
     Dates: start: 20050101
  4. SULFARLEM [Concomitant]
     Dosage: 12.5MG UNKNOWN
     Route: 048
     Dates: start: 20100521, end: 20101027
  5. ABILIFY [Suspect]
     Route: 048
     Dates: start: 20100521, end: 20101001
  6. NOCTAMIDE [Concomitant]
     Dosage: .5MG AT NIGHT
     Route: 048

REACTIONS (6)
  - NORMOCHROMIC NORMOCYTIC ANAEMIA [None]
  - RENAL TUBULAR NECROSIS [None]
  - TUBULOINTERSTITIAL NEPHRITIS [None]
  - RENAL FAILURE ACUTE [None]
  - APLASTIC ANAEMIA [None]
  - CONFUSIONAL STATE [None]
